FAERS Safety Report 13068389 (Version 1)
Quarter: 2016Q4

REPORT INFORMATION
  Report Type: Spontaneous
  Country: US (occurrence: US)
  Receive Date: 20161228
  Receipt Date: 20161228
  Transmission Date: 20170207
  Serious: Yes (Death, Other)
  Sender: FDA-Public Use
  Company Number: US-WEST-WARD PHARMACEUTICALS CORP.-US-H14001-16-02997

PATIENT
  Age: 80 Year
  Sex: Male

DRUGS (2)
  1. EPTIFIBATIDE. [Suspect]
     Active Substance: EPTIFIBATIDE
     Indication: CORONARY ARTERY THROMBOSIS
     Route: 065
  2. HEPARIN [Suspect]
     Active Substance: HEPARIN SODIUM
     Indication: INTRA-AORTIC BALLOON PLACEMENT
     Route: 065

REACTIONS (4)
  - Hypoxia [Unknown]
  - Hypotension [Unknown]
  - Cardiac arrest [Fatal]
  - Pulmonary haemorrhage [Fatal]
